FAERS Safety Report 22092527 (Version 1)
Quarter: 2023Q1

REPORT INFORMATION
  Report Type: Spontaneous
  Country: ES (occurrence: ES)
  Receive Date: 20230314
  Receipt Date: 20230314
  Transmission Date: 20230417
  Serious: Yes (Hospitalization)
  Sender: FDA-Public Use
  Company Number: None

PATIENT
  Age: 76 Year
  Sex: Male

DRUGS (8)
  1. FUROSEMIDE [Suspect]
     Active Substance: FUROSEMIDE
     Indication: Cardiac failure
     Dosage: 40.0 MG C/24 H
     Dates: start: 20211228, end: 20220928
  2. SINTROM [Concomitant]
     Active Substance: ACENOCOUMAROL
     Indication: Atrial fibrillation
     Dosage: STRENGTH: 4 MG,?4.0 MG AT DINNER
     Dates: start: 20211201
  3. ALLOPURINOL [Concomitant]
     Active Substance: ALLOPURINOL
     Indication: Gout
     Dosage: STRENGTH: 300 MG, 30 TABLETS?300.0 MG AT BREAKFAST
     Dates: start: 20200520
  4. OMEPRAZOLE [Concomitant]
     Active Substance: OMEPRAZOLE
     Indication: Arrhythmia
     Dosage: STRENGTH: 20 MG, 56 CAPSULES?20.0 MG AT BREAKFAST
     Dates: start: 20210206
  5. SERC [Concomitant]
     Indication: Musculoskeletal disorder
     Dosage: STRENGTH: 8 MG, 60 TABLETS?8.0 MG AT BREAKFAST, LUNCH AND DINNER,
     Dates: start: 20220518
  6. ATORVASTATIN [Concomitant]
     Active Substance: ATORVASTATIN
     Indication: Hyperlipidaemia
     Dosage: STRENGTH: 10 MG, 28 TABLET?10.0 MG AT DINNER
     Dates: start: 20110919
  7. SOLIFENACIN [Concomitant]
     Active Substance: SOLIFENACIN
     Indication: Benign prostatic hyperplasia
     Dosage: STRENGTH: 6 MG/0.4 MG, 30 TABLETS?1.0 TABLET AT DINNER
     Dates: start: 20220909
  8. LINAGLIPTIN [Concomitant]
     Active Substance: LINAGLIPTIN
     Indication: Atrial fibrillation
     Dosage: STRENGTH: 5 MG, 30 TABLET?5.0 MG AT LUNCH
     Dates: start: 20220720

REACTIONS (1)
  - Acute kidney injury [Recovered/Resolved]

NARRATIVE: CASE EVENT DATE: 20220928
